FAERS Safety Report 7565203-6 (Version None)
Quarter: 2011Q2

REPORT INFORMATION
  Report Type: 
  Country: None (occurrence: None)
  Receive Date: 20110622
  Receipt Date: 20110616
  Transmission Date: 20111010
  Serious: Yes (Hospitalization, Other)
  Sender: FDA-Public Use
  Company Number: JP-B.I. PHARMACEUTICALS,INC./RIDGEFIELD-2011-BP-15098NB

PATIENT
  Age: 80 Year
  Sex: Male

DRUGS (6)
  1. FAMOTIDINE [Concomitant]
     Route: 048
  2. PRADAXA [Suspect]
     Indication: ATRIAL FIBRILLATION
     Dosage: 220 MG
     Route: 048
     Dates: start: 20110501
  3. ASPIRIN [Concomitant]
     Route: 065
  4. ALLOZYM [Concomitant]
     Route: 048
  5. BIOFERMIN [Concomitant]
     Route: 048
  6. AMIODARONE HCL [Concomitant]
     Dosage: 300 MG
     Route: 048

REACTIONS (3)
  - PYREXIA [None]
  - INTERNATIONAL NORMALISED RATIO INCREASED [None]
  - DISSEMINATED INTRAVASCULAR COAGULATION [None]
